FAERS Safety Report 18732441 (Version 1)
Quarter: 2021Q1

REPORT INFORMATION
  Report Type: Spontaneous
  Country: US (occurrence: US)
  Receive Date: 20210112
  Receipt Date: 20210112
  Transmission Date: 20210419
  Serious: Yes (Death, Hospitalization, Other)
  Sender: FDA-Public Use
  Company Number: US-PFIZER INC-2021014702

PATIENT
  Age: 57 Year
  Sex: Male

DRUGS (12)
  1. DULOXETINE. [Suspect]
     Active Substance: DULOXETINE
     Dosage: UNK, INGESTION, ER
     Route: 048
  2. HYDROCHLOROTHIAZIDE. [Suspect]
     Active Substance: HYDROCHLOROTHIAZIDE
     Dosage: UNK, INGESTION
     Route: 048
  3. CLONIDINE. [Suspect]
     Active Substance: CLONIDINE
     Dosage: UNK, INGESTION
     Route: 048
  4. LISINOPRIL. [Suspect]
     Active Substance: LISINOPRIL
     Dosage: UNK, INGESTION
     Route: 048
  5. HYDROXYZINE PAMOATE. [Suspect]
     Active Substance: HYDROXYZINE PAMOATE
     Dosage: UNK, INGESTION
     Route: 048
  6. MIRTAZAPINE. [Suspect]
     Active Substance: MIRTAZAPINE
     Dosage: UNK, INGESTION
     Route: 048
  7. TRAMADOL. [Suspect]
     Active Substance: TRAMADOL
     Dosage: UNK, INGESTION
     Route: 048
  8. CLINDAMYCIN HCL [Suspect]
     Active Substance: CLINDAMYCIN HYDROCHLORIDE
     Dosage: UNK, INGESTION
     Route: 048
  9. VALPROIC ACID. [Suspect]
     Active Substance: VALPROIC ACID
     Dosage: UNK, INGESTION
     Route: 048
  10. PRAVASTATIN. [Suspect]
     Active Substance: PRAVASTATIN
     Dosage: UNK, INGESTION
     Route: 048
  11. BISPROLOL COMP [Suspect]
     Active Substance: BISOPROLOL FUMARATE\HYDROCHLOROTHIAZIDE
     Dosage: UNK, INGESTION
     Route: 048
  12. ALPRAZOLAM. [Suspect]
     Active Substance: ALPRAZOLAM
     Dosage: UNK, INGESTION
     Route: 048

REACTIONS (1)
  - Completed suicide [Fatal]

NARRATIVE: CASE EVENT DATE: 2019
